FAERS Safety Report 16348118 (Version 1)
Quarter: 2019Q2

REPORT INFORMATION
  Report Type: Spontaneous
  Country: JP (occurrence: JP)
  Receive Date: 20190523
  Receipt Date: 20190523
  Transmission Date: 20190711
  Serious: Yes (Other)
  Sender: FDA-Public Use
  Company Number: JP-SA-2019SA141651

PATIENT
  Age: 70 Year
  Sex: Female

DRUGS (1)
  1. RENAGEL [Suspect]
     Active Substance: SEVELAMER HYDROCHLORIDE
     Dosage: 250 MG
     Route: 048
     Dates: start: 201901

REACTIONS (1)
  - Pemphigoid [Unknown]

NARRATIVE: CASE EVENT DATE: 201904
